FAERS Safety Report 8614771 (Version 2)
Quarter: 2014Q1

REPORT INFORMATION
  Report Type: Spontaneous
  Country: US (occurrence: US)
  Receive Date: 20120614
  Receipt Date: 20140110
  Transmission Date: 20141002
  Serious: Yes (Disabling)
  Sender: FDA-Public Use
  Company Number: US-ASTRAZENECA-2012SE35797

PATIENT
  Age: 46 Year
  Sex: Male
  Weight: 90.7 kg

DRUGS (11)
  1. NEXIUM [Suspect]
     Indication: GASTROOESOPHAGEAL REFLUX DISEASE
     Route: 048
  2. NEXIUM [Suspect]
     Indication: DYSPEPSIA
     Route: 048
  3. NEXIUM [Suspect]
     Indication: GASTROOESOPHAGEAL REFLUX DISEASE
     Route: 048
     Dates: start: 20080109
  4. NEXIUM [Suspect]
     Indication: DYSPEPSIA
     Route: 048
     Dates: start: 20080109
  5. HYDROCODONE W/APAP [Concomitant]
     Dates: start: 20080109
  6. DIAZEPAM [Concomitant]
     Dates: start: 20080211
  7. LEXAPRO [Concomitant]
     Dates: start: 20080307
  8. ALPRAZOLAM [Concomitant]
     Dates: start: 20090309
  9. METHOCARBAMOL [Concomitant]
     Dates: start: 20110217
  10. CYCLOBENZAPRINE [Concomitant]
     Dates: start: 20120815
  11. ZOLPIDEM TARTRATE [Concomitant]
     Dates: start: 20120815

REACTIONS (9)
  - Rotator cuff syndrome [Unknown]
  - Osteoporosis [Unknown]
  - Multiple fractures [Unknown]
  - Musculoskeletal pain [Unknown]
  - Arthropathy [Unknown]
  - Acromegaly [Unknown]
  - Arthritis [Unknown]
  - Emotional distress [Unknown]
  - Depression [Unknown]
